FAERS Safety Report 12691367 (Version 6)
Quarter: 2017Q2

REPORT INFORMATION
  Report Type: Spontaneous
  Country: US (occurrence: US)
  Receive Date: 20160826
  Receipt Date: 20170403
  Transmission Date: 20170830
  Serious: Yes (Congenital Anomaly, Other)
  Sender: FDA-Public Use
  Company Number: PHHY2015US133800

PATIENT
  Sex: Female

DRUGS (3)
  1. ZOFRAN ODT [Suspect]
     Active Substance: ONDANSETRON HYDROCHLORIDE
     Indication: FOETAL EXPOSURE DURING PREGNANCY
     Route: 064
  2. ZOFRAN [Suspect]
     Active Substance: ONDANSETRON HYDROCHLORIDE
     Indication: FOETAL EXPOSURE DURING PREGNANCY
     Route: 064
  3. ZOFRAN [Suspect]
     Active Substance: ONDANSETRON HYDROCHLORIDE
     Indication: FOETAL EXPOSURE DURING PREGNANCY
     Dosage: MOTHER DOSE: 04 MG, PRN
     Route: 064

REACTIONS (23)
  - Asthma [Unknown]
  - Viral infection [Unknown]
  - Conjunctivitis allergic [Unknown]
  - Chest pain [Unknown]
  - Congenital anomaly [Unknown]
  - Kidney infection [Unknown]
  - Bronchiolitis [Unknown]
  - Otitis media [Unknown]
  - Contusion [Unknown]
  - Limb injury [Unknown]
  - Neonatal pneumonia [Unknown]
  - Foetal exposure during pregnancy [Unknown]
  - Neonatal tachycardia [Unknown]
  - Pharyngitis [Unknown]
  - Upper respiratory tract infection [Unknown]
  - Respiratory syncytial virus infection [Unknown]
  - Buttock injury [Unknown]
  - Tonsillitis [Unknown]
  - Neck pain [Unknown]
  - Ventricular septal defect [Unknown]
  - Sinus tachycardia [Unknown]
  - Syncope [Unknown]
  - Nasopharyngitis [Unknown]
